FAERS Safety Report 12484330 (Version 1)
Quarter: 2016Q2

REPORT INFORMATION
  Report Type: Spontaneous
  Country: US (occurrence: None)
  Receive Date: 20160620
  Receipt Date: 20160620
  Transmission Date: 20160815
  Serious: Yes (Hospitalization)
  Sender: FDA-Public Use
  Company Number: None

PATIENT
  Age: 6 Year
  Sex: Female
  Weight: 22.68 kg

DRUGS (2)
  1. AZITHROMYCIN FOR ORAL SUSPENSION USP 200 MG PER 5 ML NDC 00093-2026-23 [Suspect]
     Active Substance: AZITHROMYCIN DIHYDRATE
     Indication: PHARYNGITIS STREPTOCOCCAL
     Dosage: 7.1 ML (284 MG) ONCE DAILY BY MOUTH
     Route: 048
     Dates: start: 20160618, end: 20160618
  2. AZITHROMYCIN ANHYDROUS. [Concomitant]
     Active Substance: AZITHROMYCIN ANHYDROUS

REACTIONS (4)
  - Vomiting [None]
  - Malaise [None]
  - Product taste abnormal [None]
  - Abdominal discomfort [None]

NARRATIVE: CASE EVENT DATE: 20160619
